FAERS Safety Report 20314762 (Version 7)
Quarter: 2022Q4

REPORT INFORMATION
  Report Type: Report from Study
  Country: US (occurrence: US)
  Receive Date: 20220110
  Receipt Date: 20221012
  Transmission Date: 20230113
  Serious: Yes (Hospitalization)
  Sender: FDA-Public Use
  Company Number: US-NOVARTISTESTPH-NVSC2022US003404

PATIENT
  Age: 56 Year
  Sex: Female

DRUGS (1)
  1. COSENTYX [Suspect]
     Active Substance: SECUKINUMAB
     Indication: Psoriasis
     Dosage: UNK
     Route: 065
     Dates: start: 20211214

REACTIONS (6)
  - Arthropod bite [Unknown]
  - Sensory loss [Unknown]
  - Pain [Unknown]
  - Skin exfoliation [Unknown]
  - Fall [Unknown]
  - Ligament sprain [Unknown]

NARRATIVE: CASE EVENT DATE: 20220721
